FAERS Safety Report 17333736 (Version 2)
Quarter: 2020Q1

REPORT INFORMATION
  Report Type: Spontaneous
  Country: PL (occurrence: PL)
  Receive Date: 20200128
  Receipt Date: 20200218
  Transmission Date: 20200409
  Serious: Yes (Hospitalization)
  Sender: FDA-Public Use
  Company Number: PL-TEVA-2020-PL-1175844

PATIENT
  Age: 32 Year
  Sex: Male
  Weight: 80 kg

DRUGS (3)
  1. METRONIDAZOLE. [Concomitant]
     Active Substance: METRONIDAZOLE
     Dosage: 3 X 500 MG
  2. SUMAMED [Suspect]
     Active Substance: AZITHROMYCIN ANHYDROUS
     Indication: RESPIRATORY TRACT INFECTION
     Dosage: 500 MILLIGRAM DAILY; THE PATIENT TOOK ONLY 1 DOSE
     Route: 048
     Dates: start: 20191218, end: 20191219
  3. CIPRONEX [Concomitant]
     Active Substance: CIPROFLOXACIN
     Dosage: 2 X 500 MG

REACTIONS (5)
  - Diarrhoea [Recovered/Resolved]
  - Abdominal pain upper [Recovered/Resolved]
  - Pancreatic disorder [Recovered/Resolved]
  - Abdominal pain [Recovered/Resolved]
  - Vomiting [Recovered/Resolved]

NARRATIVE: CASE EVENT DATE: 20191218
